FAERS Safety Report 20582409 (Version 1)
Quarter: 2022Q1

REPORT INFORMATION
  Report Type: Spontaneous
  Country: US (occurrence: None)
  Receive Date: 20220310
  Receipt Date: 20220310
  Transmission Date: 20220423
  Serious: No
  Sender: FDA-Public Use
  Company Number: None

PATIENT
  Age: 62 Year
  Sex: Female

DRUGS (1)
  1. CAPECITABINE [Suspect]
     Active Substance: CAPECITABINE
     Indication: Breast cancer
     Dosage: 1000 MG IN MORNING A  BID ORAL?
     Route: 048
     Dates: start: 202108, end: 202203

REACTIONS (6)
  - Myalgia [None]
  - Dry mouth [None]
  - Thirst [None]
  - Peripheral swelling [None]
  - Nocturia [None]
  - Malignant neoplasm progression [None]

NARRATIVE: CASE EVENT DATE: 20220107
